FAERS Safety Report 18110257 (Version 6)
Quarter: 2021Q2

REPORT INFORMATION
  Report Type: Spontaneous
  Country: US (occurrence: US)
  Receive Date: 20200804
  Receipt Date: 20210611
  Transmission Date: 20210717
  Serious: Yes (Hospitalization, Other)
  Sender: FDA-Public Use
  Company Number: US-PFIZER INC-2020291565

PATIENT
  Age: 78 Year
  Sex: Female

DRUGS (1)
  1. XELJANZ XR [Suspect]
     Active Substance: TOFACITINIB CITRATE
     Dosage: 11 MG

REACTIONS (6)
  - Exposure to SARS-CoV-2 [Unknown]
  - Herpes zoster [Unknown]
  - Vein disorder [Unknown]
  - Chest injury [Unknown]
  - Dermatitis contact [Unknown]
  - Fall [Unknown]
